FAERS Safety Report 8496120-5 (Version None)
Quarter: 2012Q2

REPORT INFORMATION
  Report Type: 
  Country: None (occurrence: None)
  Receive Date: 20120405
  Receipt Date: 20120221
  Transmission Date: 20120825
  Serious: Yes (Hospitalization)
  Sender: FDA-Public Use
  Company Number: PHEH2011US07616

PATIENT
  Age: 56 Year
  Sex: Male

DRUGS (11)
  1. SEROQUEL [Concomitant]
  2. HYDROXYZINE PAMOATE [Concomitant]
  3. AMLODIPINE + CLOTRIMAZOLE [Suspect]
  4. PRISTIQ [Concomitant]
  5. SUMATRIPTAN (SUMATRIPTAN) INJECTION [Concomitant]
  6. XANAX [Concomitant]
  7. LOTREL [Suspect]
     Dosage: 1 DF, QD
     Dates: start: 20110301
  8. TOPIRAMATE [Concomitant]
  9. DIBALPROEZ ER [Concomitant]
  10. OMEPRAZOLE [Concomitant]
  11. AVELOX [Suspect]

REACTIONS (12)
  - OROPHARYNGEAL PAIN [None]
  - HEADACHE [None]
  - SWOLLEN TONGUE [None]
  - RETCHING [None]
  - ANGIOEDEMA [None]
  - DYSPHONIA [None]
  - DIZZINESS [None]
  - LIP SWELLING [None]
  - SWELLING [None]
  - COUGH [None]
  - PROTRUSION TONGUE [None]
  - FEELING ABNORMAL [None]
